FAERS Safety Report 11270175 (Version 2)
Quarter: 2015Q3

REPORT INFORMATION
  Report Type: Spontaneous
  Country: US (occurrence: US)
  Receive Date: 20150714
  Receipt Date: 20150805
  Transmission Date: 20151125
  Serious: No
  Sender: FDA-Public Use
  Company Number: US-PFIZER INC-2015233006

PATIENT
  Age: 18 Year
  Sex: Male
  Weight: 59 kg

DRUGS (1)
  1. GENOTROPIN [Suspect]
     Active Substance: SOMATROPIN
     Indication: GROWTH HORMONE DEFICIENCY
     Dosage: UNK
     Dates: start: 2001

REACTIONS (2)
  - Depression [Not Recovered/Not Resolved]
  - Injection site pain [Not Recovered/Not Resolved]
